FAERS Safety Report 14421447 (Version 1)
Quarter: 2018Q1

REPORT INFORMATION
  Report Type: Spontaneous
  Country: US (occurrence: US)
  Receive Date: 20180122
  Receipt Date: 20180122
  Transmission Date: 20180509
  Serious: No
  Sender: FDA-Public Use
  Company Number: US-ALLERGAN-1756109US

PATIENT
  Sex: Female

DRUGS (1)
  1. KYBELLA [Suspect]
     Active Substance: DEOXYCHOLIC ACID
     Indication: SCLEROTHERAPY
     Dosage: 4 VIALS, SINGLE
     Dates: start: 20170926, end: 20170926

REACTIONS (1)
  - Product label confusion [Unknown]
